FAERS Safety Report 17187597 (Version 3)
Quarter: 2020Q1

REPORT INFORMATION
  Report Type: Spontaneous
  Country: US (occurrence: US)
  Receive Date: 20191220
  Receipt Date: 20200221
  Transmission Date: 20200409
  Serious: No
  Sender: FDA-Public Use
  Company Number: NVSC2019US027040

PATIENT
  Sex: Female
  Weight: 61.2 kg

DRUGS (3)
  1. ZOFRAN ODT [Suspect]
     Active Substance: ONDANSETRON HYDROCHLORIDE
     Indication: HYPEREMESIS GRAVIDARUM
     Dosage: 04 MG, Q6H
     Route: 048
     Dates: start: 20110401
  2. ZOFRAN [Suspect]
     Active Substance: ONDANSETRON HYDROCHLORIDE
     Indication: MORNING SICKNESS
     Dosage: 04 MG, Q6H
     Route: 042
     Dates: start: 20110401, end: 20110401
  3. ZOFRAN [Suspect]
     Active Substance: ONDANSETRON HYDROCHLORIDE
     Dosage: 04 MG, Q6H
     Route: 042
     Dates: start: 20110403, end: 20110408

REACTIONS (6)
  - Product use in unapproved indication [Unknown]
  - Anxiety [Unknown]
  - Maternal exposure during pregnancy [Unknown]
  - Emotional distress [Unknown]
  - Pain [Unknown]
  - Anhedonia [Unknown]
